FAERS Safety Report 9783540 (Version 4)
Quarter: 2014Q3

REPORT INFORMATION
  Report Type: Spontaneous
  Country: DE (occurrence: DE)
  Receive Date: 20131226
  Receipt Date: 20140718
  Transmission Date: 20150326
  Serious: Yes (Life-Threatening, Hospitalization, Disabling, Congenital Anomaly, Other)
  Sender: FDA-Public Use
  Company Number: DE-ASTRAZENECA-2013SE93502

PATIENT
  Sex: Female
  Weight: 3.9 kg

DRUGS (6)
  1. CANDESARTAN [Suspect]
     Active Substance: CANDESARTAN
     Indication: HYPERTENSION
     Route: 064
  2. LOSARTAN POTASSIUM. [Suspect]
     Active Substance: LOSARTAN POTASSIUM
     Indication: HYPERTENSION
     Route: 062
  3. METOPROLOL [Suspect]
     Active Substance: METOPROLOL
     Indication: HYPERTENSION
     Route: 064
     Dates: start: 20130217, end: 20131015
  4. PRESINOL [Concomitant]
     Active Substance: METHYLDOPA
  5. METOPROLOL [Suspect]
     Active Substance: METOPROLOL
     Indication: HYPERTENSION
     Route: 064
     Dates: start: 20130610
  6. METOPROLOL [Suspect]
     Active Substance: METOPROLOL
     Indication: HYPERTENSION
     Route: 064
     Dates: start: 20130705

REACTIONS (6)
  - Cerebral infarction [Unknown]
  - Renal failure neonatal [Unknown]
  - Renal infarct [Unknown]
  - Atrial septal defect [Unknown]
  - Vena cava thrombosis [Unknown]
  - Renal hypertrophy [Unknown]

NARRATIVE: CASE EVENT DATE: 20131128
